FAERS Safety Report 5289330-1 (Version None)
Quarter: 2007Q2

REPORT INFORMATION
  Report Type: 
  Country: None (occurrence: None)
  Receive Date: 20070404
  Receipt Date: 20070404
  Transmission Date: 20071010
  Serious: Yes (Hospitalization)
  Sender: FDA-Public Use
  Company Number: None

PATIENT
  Sex: Male
  Weight: 57.6068 kg

DRUGS (4)
  1. IRON DEXTRAN [Suspect]
     Indication: ANAEMIA
     Dosage: 0.5ML IRON DEXTRAN  ONCE   IV
     Route: 042
     Dates: start: 20060705, end: 20060705
  2. IRON DEXTRAN [Suspect]
     Indication: EPISTAXIS
     Dosage: 0.5ML IRON DEXTRAN  ONCE   IV
     Route: 042
     Dates: start: 20060705, end: 20060705
  3. IRON DEXTRAN [Suspect]
     Indication: HAEMATOCRIT DECREASED
     Dosage: 0.5ML IRON DEXTRAN  ONCE   IV
     Route: 042
     Dates: start: 20060705, end: 20060705
  4. IRON DEXTRAN [Suspect]
     Indication: HAEMOGLOBIN DECREASED
     Dosage: 0.5ML IRON DEXTRAN  ONCE   IV
     Route: 042
     Dates: start: 20060705, end: 20060705

REACTIONS (4)
  - BACK PAIN [None]
  - NAUSEA [None]
  - PAIN [None]
  - PALLOR [None]
